FAERS Safety Report 6984720-0 (Version None)
Quarter: 2010Q3

REPORT INFORMATION
  Report Type: 
  Country: None (occurrence: None)
  Receive Date: 20100914
  Receipt Date: 20100914
  Transmission Date: 20110219
  Serious: Yes (Hospitalization)
  Sender: FDA-Public Use
  Company Number: None

PATIENT
  Sex: Female
  Weight: 102.0593 kg

DRUGS (2)
  1. FENTANYL-75 [Suspect]
     Indication: ARTHRITIS
     Dosage: 1Q 72H
     Dates: start: 20090701
  2. FOLIC ACID [Concomitant]

REACTIONS (3)
  - DRUG INEFFECTIVE [None]
  - DRUG WITHDRAWAL SYNDROME [None]
  - PRODUCT SUBSTITUTION ISSUE [None]
